FAERS Safety Report 21798620 (Version 1)
Quarter: 2022Q4

REPORT INFORMATION
  Report Type: Spontaneous
  Country: DE (occurrence: DE)
  Receive Date: 20221230
  Receipt Date: 20221230
  Transmission Date: 20230112
  Serious: No
  Sender: FDA-Public Use
  Company Number: DE-ALKEM LABORATORIES LIMITED-DE-ALKEM-2022-10704

PATIENT
  Age: 2 Month
  Sex: Female

DRUGS (1)
  1. SIROLIMUS [Suspect]
     Active Substance: SIROLIMUS
     Indication: Cystic lymphangioma
     Dosage: UNK, BID (0.4-0.8 MG/M2) FOR 1}6 MONTH
     Route: 048

REACTIONS (1)
  - Dyslipidaemia [Unknown]
